FAERS Safety Report 20846104 (Version 1)
Quarter: 2022Q2

REPORT INFORMATION
  Report Type: Spontaneous
  Country: US (occurrence: US)
  Receive Date: 20220518
  Receipt Date: 20220518
  Transmission Date: 20220720
  Serious: No
  Sender: FDA-Public Use
  Company Number: US-PFIZER INC-202200240973

PATIENT
  Age: 82 Year
  Sex: Male
  Weight: 86.18 kg

DRUGS (10)
  1. HYDROCORTISONE ACETATE [Suspect]
     Active Substance: HYDROCORTISONE ACETATE
     Indication: Rash
     Dosage: UNK
     Dates: start: 2021
  2. HYDROCORTISONE ACETATE [Suspect]
     Active Substance: HYDROCORTISONE ACETATE
     Indication: Pruritus
  3. PREDNISONE [Suspect]
     Active Substance: PREDNISONE
     Indication: Rash
     Dosage: 10 MG (PILL)
     Dates: start: 20210225
  4. PREDNISONE [Suspect]
     Active Substance: PREDNISONE
     Indication: Pruritus
  5. EUCERIN [Suspect]
     Active Substance: ENSULIZOLE\EUCERIN\OCTINOXATE\OCTISALATE\TITANIUM DIOXIDE\ZINC OXIDE
     Indication: Rash
     Dosage: UNK
     Dates: start: 2021
  6. EUCERIN [Suspect]
     Active Substance: ENSULIZOLE\EUCERIN\OCTINOXATE\OCTISALATE\TITANIUM DIOXIDE\ZINC OXIDE
     Indication: Pruritus
  7. TRIAMCINOLONE [Suspect]
     Active Substance: TRIAMCINOLONE
     Indication: Rash
     Dosage: UNK
     Dates: start: 2021
  8. TRIAMCINOLONE [Suspect]
     Active Substance: TRIAMCINOLONE
     Indication: Pruritus
  9. BENADRYL [Suspect]
     Active Substance: DIPHENHYDRAMINE HYDROCHLORIDE
     Indication: Pruritus
     Dosage: UNK
     Dates: start: 2021
  10. CLARITIN [Suspect]
     Active Substance: LORATADINE
     Indication: Pruritus
     Dosage: UNK
     Dates: start: 2021

REACTIONS (1)
  - Drug ineffective [Unknown]

NARRATIVE: CASE EVENT DATE: 20210101
